FAERS Safety Report 8799472 (Version 1)
Quarter: 2012Q4

REPORT INFORMATION
  Report Type: 
  Country: US (occurrence: US)
  Receive Date: 20120919
  Receipt Date: 20120919
  Transmission Date: 20130627
  Serious: No
  Sender: FDA-Public Use
  Company Number: US-PFIZER INC-2012228259

PATIENT
  Age: 34 Year
  Sex: Female
  Weight: 68.03 kg

DRUGS (3)
  1. DEPO-PROVERA [Suspect]
     Indication: CONTRACEPTION
     Dosage: UNK, every 3 months
  2. TYLENOL [Suspect]
     Dosage: 250 mg, daily
  3. ACETAMINOPHEN\ASPIRIN\CAFFEINE [Suspect]
     Dosage: 250/250/65 mg, daily

REACTIONS (1)
  - Drug screen false positive [Unknown]
